FAERS Safety Report 9722852 (Version 1)
Quarter: 2013Q4

REPORT INFORMATION
  Report Type: Spontaneous
  Country: US (occurrence: US)
  Receive Date: 20131202
  Receipt Date: 20131202
  Transmission Date: 20140711
  Serious: No
  Sender: FDA-Public Use
  Company Number: US-BAYER-2013-146724

PATIENT
  Sex: Female

DRUGS (1)
  1. MIDOL EXTENDED RELIEF CAPLET [Suspect]
     Dosage: UNK
     Route: 048
     Dates: start: 20131126

REACTIONS (1)
  - Lip swelling [Not Recovered/Not Resolved]
